FAERS Safety Report 4660515-8 (Version None)
Quarter: 2005Q2

REPORT INFORMATION
  Report Type: 
  Country: None (occurrence: None)
  Receive Date: 20050427
  Receipt Date: 20050308
  Transmission Date: 20051028
  Serious: No
  Sender: FDA-Public Use
  Company Number: 212587

PATIENT
  Age: 36 Year
  Sex: Female
  Weight: 97.1 kg

DRUGS (6)
  1. XOLAIR [Suspect]
     Indication: ASTHMA
     Dosage: 300 MG, 1/MONTH, SUBCUTANEOUS
     Route: 058
     Dates: start: 20040901
  2. ADVAIR (FLUTICASONE PROPINATE, SALMETEROL XINAFOATE) [Concomitant]
  3. ZYRTEC [Concomitant]
  4. PREVACID [Concomitant]
  5. SINGULAIR [Concomitant]
  6. ALBUTEROL (ALBUTEROL, ALBUTEROL SULFATE) [Concomitant]

REACTIONS (1)
  - URTICARIA [None]
